FAERS Safety Report 13957655 (Version 1)
Quarter: 2017Q3

REPORT INFORMATION
  Report Type: Other
  Country: DE (occurrence: DE)
  Receive Date: 20170912
  Receipt Date: 20170912
  Transmission Date: 20171128
  Serious: Yes (Hospitalization)
  Sender: FDA-Public Use
  Company Number: DE-MACLEODS PHARMACEUTICALS US LTD-MAC2017005820

PATIENT

DRUGS (7)
  1. IBUPROFEN [Concomitant]
     Indication: ANALGESIC THERAPY
  2. CORTISON [Concomitant]
     Active Substance: CORTISONE ACETATE
     Indication: ANTIINFLAMMATORY THERAPY
     Dosage: SPORTS INJURY IN THE GROIN, ADMINISTERED 3X AS
     Route: 065
  3. AMOXICILLIN [Concomitant]
     Indication: PROSTATITIS
     Dosage: 125 MG, UNK
     Route: 048
  4. CORTISON [Concomitant]
     Active Substance: CORTISONE ACETATE
     Indication: ANALGESIC THERAPY
  5. LEVOFLOXACIN. [Suspect]
     Active Substance: LEVOFLOXACIN
     Indication: PROSTATITIS
     Dosage: 500 MG, BID
     Route: 048
  6. OFLOXACIN. [Suspect]
     Active Substance: OFLOXACIN
     Indication: URINARY TRACT INFECTION
     Dosage: 100 MG, UNK
     Route: 048
  7. IBUPROFEN [Concomitant]
     Indication: ANTIINFLAMMATORY THERAPY
     Dosage: 400 MG, INDICATION: PAIN AND INFLAMMATION CONTROL
     Route: 048

REACTIONS (9)
  - Apathy [Not Recovered/Not Resolved]
  - Tinnitus [Not Recovered/Not Resolved]
  - Fatigue [Not Recovered/Not Resolved]
  - Myalgia [Not Recovered/Not Resolved]
  - Food intolerance [Not Recovered/Not Resolved]
  - Tendon pain [Not Recovered/Not Resolved]
  - Dysphagia [Not Recovered/Not Resolved]
  - Arthralgia [Not Recovered/Not Resolved]
  - Paraesthesia [Not Recovered/Not Resolved]

NARRATIVE: CASE EVENT DATE: 20160508
